FAERS Safety Report 17599261 (Version 2)
Quarter: 2020Q2

REPORT INFORMATION
  Report Type: Spontaneous
  Country: DE (occurrence: DE)
  Receive Date: 20200330
  Receipt Date: 20200427
  Transmission Date: 20200713
  Serious: Yes (Hospitalization, Other)
  Sender: FDA-Public Use
  Company Number: DE-MYLANLABS-2020M1031958

PATIENT
  Age: 55 Year
  Sex: Male
  Weight: 112 kg

DRUGS (43)
  1. SIFROL [Suspect]
     Active Substance: PRAMIPEXOLE
     Indication: RESTLESS LEGS SYNDROME
     Dosage: UNK
     Route: 048
  2. PRAVASIN [Concomitant]
     Active Substance: PRAVASTATIN SODIUM
     Dosage: UNK
  3. ALLOPURINOL. [Concomitant]
     Active Substance: ALLOPURINOL
     Indication: HYPERURICAEMIA
     Dosage: 100 MG, 1X/DAY
     Route: 048
  4. ALLOPURINOL. [Concomitant]
     Active Substance: ALLOPURINOL
     Dosage: 200 MG, QD
  5. LYRICA [Concomitant]
     Active Substance: PREGABALIN
     Dosage: UNK
  6. PANTOZOL [Concomitant]
     Active Substance: PANTOPRAZOLE SODIUM
     Dosage: 40 MG, 1X/DAY
     Route: 048
  7. CARBIDOPA AND LEVODOPA [Concomitant]
     Active Substance: CARBIDOPA\LEVODOPA
     Dosage: UNK
     Route: 048
     Dates: start: 20030731, end: 20030822
  8. CABASERIL [Suspect]
     Active Substance: CABERGOLINE
     Dosage: 2 MILLIGRAM, QD, (2 MG, 1X/DAY)
     Route: 048
     Dates: start: 2003, end: 200906
  9. CABASERIL [Suspect]
     Active Substance: CABERGOLINE
     Dosage: 4 MG, QD
     Route: 048
     Dates: start: 200308, end: 200606
  10. ZOPICLONE [Concomitant]
     Active Substance: ZOPICLONE
     Dosage: 7.5 MG, 1X/DAY (NIGHT)
     Route: 048
  11. CAPTOPRIL. [Concomitant]
     Active Substance: CAPTOPRIL
     Dosage: UNK
  12. ASPIRIN. [Concomitant]
     Active Substance: ASPIRIN
     Dosage: UNK
  13. LORMETAZEPAM [Concomitant]
     Active Substance: LORMETAZEPAM
     Dosage: UNK
     Route: 048
  14. TOREM                              /01036501/ [Concomitant]
     Active Substance: TORSEMIDE
     Dosage: 10 MG, 2X/DAY
     Route: 048
  15. NOCTAMID [Concomitant]
     Active Substance: LORMETAZEPAM
     Dosage: UNK
  16. ZOCOR [Suspect]
     Active Substance: SIMVASTATIN
     Indication: HYPERLIPIDAEMIA
     Dosage: 20 MG, 2X/DAY
     Route: 048
  17. CABASERIL [Suspect]
     Active Substance: CABERGOLINE
     Dosage: 1 MILLIGRAM, QD, 1X/DAY
     Route: 048
     Dates: start: 200906
  18. MAGNESIUM [Concomitant]
     Active Substance: MAGNESIUM
     Dosage: UNK
  19. ASPIRIN. [Concomitant]
     Active Substance: ASPIRIN
     Dosage: 100 MG, 1X/DAY
     Route: 048
  20. DELIX PLUS [Concomitant]
     Active Substance: HYDROCHLOROTHIAZIDE\RAMIPRIL
     Dosage: 1 DF, 1X/DAY
     Route: 048
  21. CABASERIL [Suspect]
     Active Substance: CABERGOLINE
     Indication: RESTLESS LEGS SYNDROME
     Dosage: 4 MG, 1X/DAY
     Route: 048
     Dates: start: 2003, end: 200606
  22. CAPTOPRIL. [Concomitant]
     Active Substance: CAPTOPRIL
     Dosage: 12.5 MG, 1X/DAY
     Route: 048
  23. TREVILOR RETARD [Concomitant]
     Active Substance: VENLAFAXINE HYDROCHLORIDE
     Dosage: 75 MG, 2X/DAY
     Route: 048
  24. NACOM [Concomitant]
     Active Substance: CARBIDOPA\LEVODOPA
     Dosage: UNK
     Route: 048
     Dates: start: 1993, end: 2000
  25. SEROQUEL [Concomitant]
     Active Substance: QUETIAPINE FUMARATE
     Dosage: 200 MG, 1X/DAY
     Route: 048
  26. LORMETAZEPAM [Concomitant]
     Active Substance: LORMETAZEPAM
     Dosage: 1 MILLIGRAM, QD
     Dates: start: 200308
  27. TRAMAL [Concomitant]
     Active Substance: TRAMADOL
     Indication: PAIN
     Dosage: UNK
     Route: 048
     Dates: start: 200904, end: 200905
  28. LYRICA [Concomitant]
     Active Substance: PREGABALIN
     Dosage: 150 MG, 2X/DAY
     Route: 048
  29. DULOXETINE HYDROCHLORIDE. [Concomitant]
     Active Substance: DULOXETINE HYDROCHLORIDE
     Dosage: 90 MILLIGRAM, QD
     Dates: start: 2009
  30. ZOCOR [Suspect]
     Active Substance: SIMVASTATIN
     Dosage: 20 MILLIGRAM, QD, (20 MG, 1X/DAY)
     Route: 048
  31. NACOM [Concomitant]
     Active Substance: CARBIDOPA\LEVODOPA
     Indication: RESTLESS LEGS SYNDROME
     Dosage: 200 MG, UNK
     Route: 048
     Dates: start: 20030731, end: 20030822
  32. FERRO SANOL [Concomitant]
     Active Substance: FERROUS GLYCINE SULFATE
     Dosage: 20 GTT, 1X/DAY
     Route: 048
  33. FERRO SANOL [Concomitant]
     Active Substance: FERROUS GLYCINE SULFATE
     Dosage: 20 UNK, QD
     Route: 048
  34. IBUPROFEN. [Concomitant]
     Active Substance: IBUPROFEN
     Indication: PAIN
     Dosage: UNK
     Route: 048
  35. MADOPAR [Concomitant]
     Active Substance: BENSERAZIDE HYDROCHLORIDE\LEVODOPA
     Indication: RESTLESS LEGS SYNDROME
     Dosage: 50 MG, 3X/DAY
     Route: 048
     Dates: start: 20030731, end: 20030822
  36. TREVILOR RETARD [Concomitant]
     Active Substance: VENLAFAXINE HYDROCHLORIDE
     Dosage: UNK
  37. OXYGESIC [Concomitant]
     Active Substance: OXYCODONE
     Indication: PAIN
     Dosage: UNK
     Route: 048
     Dates: start: 200904, end: 200905
  38. CARBIDOPA AND LEVODOPA [Concomitant]
     Active Substance: CARBIDOPA\LEVODOPA
     Dosage: UNK
     Route: 048
     Dates: start: 1993, end: 2000
  39. PRAMIPEXOLE. [Suspect]
     Active Substance: PRAMIPEXOLE
     Indication: PRODUCT USED FOR UNKNOWN INDICATION
     Dosage: UNK
     Route: 048
     Dates: start: 2003
  40. CABASERIL [Suspect]
     Active Substance: CABERGOLINE
     Dosage: 3 MILLIGRAM, QD, 1X/DAY
     Route: 048
     Dates: start: 200606
  41. SEROQUEL [Concomitant]
     Active Substance: QUETIAPINE FUMARATE
     Dosage: UNK
  42. LORMETAZEPAM [Concomitant]
     Active Substance: LORMETAZEPAM
     Dosage: 2 MILLIGRAM, QD
     Dates: start: 200308
  43. MORPHINE [Concomitant]
     Active Substance: MORPHINE
     Indication: PAIN
     Dosage: UNK
     Route: 048
     Dates: start: 2007

REACTIONS (51)
  - Hepatic steatosis [Not Recovered/Not Resolved]
  - Obesity [Not Recovered/Not Resolved]
  - Left ventricular hypertrophy [Recovering/Resolving]
  - Myocarditis [Not Recovered/Not Resolved]
  - Umbilical hernia [Unknown]
  - Restless legs syndrome [Recovering/Resolving]
  - Fluid retention [Recovered/Resolved]
  - Renal cyst [Not Recovered/Not Resolved]
  - Logorrhoea [Unknown]
  - Impulse-control disorder [Not Recovered/Not Resolved]
  - Back pain [Unknown]
  - Cerebrovascular accident [Recovered/Resolved with Sequelae]
  - Serum ferritin decreased [Unknown]
  - Insomnia [Recovering/Resolving]
  - Pain in extremity [Unknown]
  - Personality disorder [Unknown]
  - Sleep apnoea syndrome [Unknown]
  - Homicidal ideation [Unknown]
  - Condition aggravated [Unknown]
  - Suicide attempt [Unknown]
  - Somnolence [Unknown]
  - Hepatic cirrhosis [Not Recovered/Not Resolved]
  - Arthropathy [Unknown]
  - Bundle branch block left [Unknown]
  - Substance dependence [Not Recovered/Not Resolved]
  - Costochondritis [Unknown]
  - Chest pain [Unknown]
  - Pulmonary hypertension [Not Recovered/Not Resolved]
  - Suicidal ideation [Unknown]
  - Drug abuse [Unknown]
  - Road traffic accident [Unknown]
  - Alcoholism [Unknown]
  - Gambling disorder [Unknown]
  - Myositis [Unknown]
  - Blood creatine phosphokinase increased [Unknown]
  - Oedema peripheral [Recovered/Resolved]
  - Dyspnoea [Recovered/Resolved]
  - Intentional self-injury [Unknown]
  - Depression suicidal [Not Recovered/Not Resolved]
  - Intentional overdose [Recovered/Resolved]
  - Bilirubinuria [Unknown]
  - Periarthritis [Unknown]
  - Aortic valve disease [Unknown]
  - Aortic valve incompetence [Not Recovered/Not Resolved]
  - Gynaecomastia [Unknown]
  - Bone disorder [Unknown]
  - Sleep disorder [Unknown]
  - Hepatosplenomegaly [Unknown]
  - Hyperphagia [Not Recovered/Not Resolved]
  - Depression [Unknown]
  - Cardiomegaly [Unknown]

NARRATIVE: CASE EVENT DATE: 2003
